FAERS Safety Report 19787851 (Version 1)
Quarter: 2021Q3

REPORT INFORMATION
  Report Type: Report from Study
  Country: US (occurrence: US)
  Receive Date: 20210903
  Receipt Date: 20210903
  Transmission Date: 20211014
  Serious: Yes (Death)
  Sender: FDA-Public Use
  Company Number: US-ASTRAZENECA-2021A708024

PATIENT
  Sex: Female
  Weight: 58.5 kg

DRUGS (12)
  1. AMBIEN [Concomitant]
     Active Substance: ZOLPIDEM TARTRATE
  2. CALCIUM CARBONATE. [Concomitant]
     Active Substance: CALCIUM CARBONATE
  3. LASIX [Concomitant]
     Active Substance: FUROSEMIDE
  4. CARAFATE [Concomitant]
     Active Substance: SUCRALFATE
  5. HYDROXYZINE HCL [Concomitant]
     Active Substance: HYDROXYZINE HYDROCHLORIDE
  6. CALQUENCE [Suspect]
     Active Substance: ACALABRUTINIB
     Indication: CHRONIC LYMPHOCYTIC LEUKAEMIA
     Route: 048
  7. IMBRUVICA [Concomitant]
     Active Substance: IBRUTINIB
  8. LOPRESSOR [Concomitant]
     Active Substance: METOPROLOL TARTRATE
  9. LOSARTAN. [Concomitant]
     Active Substance: LOSARTAN
  10. PROTONIX [Concomitant]
     Active Substance: PANTOPRAZOLE SODIUM
  11. ZOFRAN [Concomitant]
     Active Substance: ONDANSETRON HYDROCHLORIDE
  12. CAPTOPRIL. [Concomitant]
     Active Substance: CAPTOPRIL

REACTIONS (1)
  - Death [Fatal]
